FAERS Safety Report 9109506 (Version 1)
Quarter: 2013Q1

REPORT INFORMATION
  Report Type: Report from Study
  Country: GB (occurrence: GB)
  Receive Date: 20130222
  Receipt Date: 20130222
  Transmission Date: 20140127
  Serious: Yes (Hospitalization)
  Sender: FDA-Public Use
  Company Number: GB-PFIZER INC-2013062336

PATIENT
  Age: 7 Year
  Sex: Male
  Weight: 21 kg

DRUGS (11)
  1. DOXORUBICIN [Suspect]
     Indication: NEOPLASM MALIGNANT
     Dosage: 26 MG, 1X/DAY
     Route: 042
     Dates: start: 20120704
  2. DOXORUBICIN [Suspect]
  3. IFOSFAMIDE [Suspect]
     Dosage: 2550 MG, UNK
     Route: 042
     Dates: start: 20120704
  4. VINCRISTINE SULFATE [Suspect]
     Indication: NEOPLASM MALIGNANT
     Dosage: 1.3 MG, 1X/DAY
     Route: 042
     Dates: start: 20120704
  5. ACTINOMYCIN D [Suspect]
     Indication: NEOPLASM MALIGNANT
     Dosage: 1.3 MG, 1X/DAY
     Route: 042
     Dates: start: 20120704
  6. MESNA [Suspect]
     Indication: NEOPLASM MALIGNANT
     Dosage: 3570 MG, UNK
     Route: 042
     Dates: start: 20120704
  7. DOCUSATE [Concomitant]
     Indication: PRODUCT USED FOR UNKNOWN INDICATION
     Dosage: 25 MG, UNK
     Dates: start: 20120703
  8. CO-TRIMOXAZOLE [Concomitant]
     Indication: PRODUCT USED FOR UNKNOWN INDICATION
     Dosage: 360 MG, UNK
     Dates: start: 20120707
  9. MOVICOL [Concomitant]
     Indication: PRODUCT USED FOR UNKNOWN INDICATION
     Dates: start: 20120701, end: 20120709
  10. PARACETAMOL [Concomitant]
     Indication: PRODUCT USED FOR UNKNOWN INDICATION
     Dosage: 360 MG, UNK
     Dates: start: 20120707, end: 20120707
  11. ONDANSETRON [Concomitant]
     Indication: PRODUCT USED FOR UNKNOWN INDICATION
     Dosage: 4 MG, UNK
     Dates: start: 20120714, end: 20120720

REACTIONS (2)
  - Febrile neutropenia [Recovered/Resolved]
  - Vomiting [Recovered/Resolved]
